FAERS Safety Report 4871254-2 (Version None)
Quarter: 2005Q4

REPORT INFORMATION
  Report Type: 
  Country: None (occurrence: None)
  Receive Date: 20051229
  Receipt Date: 20051216
  Transmission Date: 20060501
  Serious: Yes (Disabling, Other)
  Sender: FDA-Public Use
  Company Number: 2005159028

PATIENT
  Sex: Male
  Weight: 107.5025 kg

DRUGS (8)
  1. VIAGRA [Suspect]
     Indication: ERECTILE DYSFUNCTION
     Dosage: 100 MG, AS NECESSARY
     Dates: end: 20040712
  2. RANITIDINE HCL [Concomitant]
  3. CYANOCOBALAMIN [Concomitant]
  4. FOLIC ACID [Concomitant]
  5. GATIFLOXACIN [Concomitant]
  6. PYRIDOXINE (PYRIDOXINE) [Concomitant]
  7. ZINC (ZINC) [Concomitant]
  8. SELENIUM (SELENIUM) [Concomitant]

REACTIONS (10)
  - ATRIOVENTRICULAR BLOCK FIRST DEGREE [None]
  - BLINDNESS [None]
  - BLOOD HOMOCYSTEINE INCREASED [None]
  - FAT EMBOLISM [None]
  - FUNDOSCOPY ABNORMAL [None]
  - HAEMATURIA [None]
  - HYPERTENSION [None]
  - RETINAL ARTERY OCCLUSION [None]
  - TRANSIENT ISCHAEMIC ATTACK [None]
  - WEIGHT DECREASED [None]
